FAERS Safety Report 10986112 (Version 1)
Quarter: 2015Q2

REPORT INFORMATION
  Report Type: Spontaneous
  Country: IN (occurrence: None)
  Receive Date: 20150403
  Receipt Date: 20150403
  Transmission Date: 20150821
  Serious: Yes (Hospitalization)
  Sender: FDA-Public Use
  Company Number: None

PATIENT
  Age: 30 Year
  Sex: Female
  Weight: 68 kg

DRUGS (5)
  1. LUKOTAS [Concomitant]
  2. DEPO-MEDROL [Suspect]
     Active Substance: METHYLPREDNISOLONE ACETATE
     Indication: BRONCHITIS
     Dosage: 1 ML ONLY FOR ONCE INTO THE MUSCLE
  3. DOXYCYCLINE. [Concomitant]
     Active Substance: DOXYCYCLINE
  4. RABEKIND - DSR [Concomitant]
  5. GRILINCTUS [Concomitant]

REACTIONS (1)
  - Syncope [None]

NARRATIVE: CASE EVENT DATE: 20150331
